FAERS Safety Report 5994823-5 (Version None)
Quarter: 2008Q4

REPORT INFORMATION
  Report Type: 
  Country: None (occurrence: None)
  Receive Date: 20081212
  Receipt Date: 20080916
  Transmission Date: 20090506
  Serious: Yes (Hospitalization)
  Sender: FDA-Public Use
  Company Number: US-ABBOTT-08P-163-0476569-00

PATIENT
  Sex: Male
  Weight: 93.978 kg

DRUGS (1)
  1. HUMIRA [Suspect]
     Indication: CROHN'S DISEASE
     Route: 050
     Dates: start: 20080301, end: 20080801

REACTIONS (2)
  - CROHN'S DISEASE [None]
  - GASTROINTESTINAL INFECTION [None]
